FAERS Safety Report 10458400 (Version 2)
Quarter: 2014Q3

REPORT INFORMATION
  Report Type: Spontaneous
  Country: US (occurrence: US)
  Receive Date: 20140917
  Receipt Date: 20140929
  Transmission Date: 20150326
  Serious: Yes (Death, Other)
  Sender: FDA-Public Use
  Company Number: US-009507513-1409USA007249

PATIENT
  Age: 90 Year
  Sex: Female

DRUGS (1)
  1. ZETIA [Suspect]
     Active Substance: EZETIMIBE
     Indication: ROUTINE HEALTH MAINTENANCE
     Dosage: UNK
     Route: 048
     Dates: start: 2010

REACTIONS (4)
  - Hip fracture [Unknown]
  - Haemorrhage [Unknown]
  - Accidental death [Fatal]
  - Fall [Unknown]

NARRATIVE: CASE EVENT DATE: 20140820
